FAERS Safety Report 7902059-3 (Version None)
Quarter: 2011Q4

REPORT INFORMATION
  Report Type: 
  Country: None (occurrence: None)
  Receive Date: 20111108
  Receipt Date: 20111028
  Transmission Date: 20120403
  Serious: Yes (Other)
  Sender: FDA-Public Use
  Company Number: JP-GLAXOSMITHKLINE-B0759555A

PATIENT
  Age: 80 Year
  Sex: Female

DRUGS (1)
  1. PAXIL [Suspect]
     Indication: PANIC DISORDER
     Route: 048
     Dates: start: 20110701

REACTIONS (2)
  - LOSS OF CONSCIOUSNESS [None]
  - ORTHOSTATIC HYPOTENSION [None]
